FAERS Safety Report 24302081 (Version 2)
Quarter: 2025Q1

REPORT INFORMATION
  Report Type: Spontaneous
  Country: CA (occurrence: CA)
  Receive Date: 20240910
  Receipt Date: 20250317
  Transmission Date: 20250408
  Serious: Yes (Other)
  Sender: AUROBINDO
  Company Number: CA-AUROBINDO-AUR-APL-2024-044036

PATIENT
  Age: 69 Year
  Sex: Male

DRUGS (6)
  1. TERBINAFINE [Suspect]
     Active Substance: TERBINAFINE
     Indication: Rash pruritic
     Dosage: 250 MILLIGRAM, ONCE A DAY
     Route: 065
  2. PREDNISONE [Suspect]
     Active Substance: PREDNISONE
     Indication: Syncope
     Dosage: 50 MILLIGRAM, ONCE A DAY
     Route: 065
  3. ASPIRIN [Concomitant]
     Active Substance: ASPIRIN
     Indication: Product used for unknown indication
     Route: 065
  4. CLOPIDOGREL [Concomitant]
     Active Substance: CLOPIDOGREL BISULFATE
     Indication: Product used for unknown indication
     Route: 065
  5. EZETIMIBE [Concomitant]
     Active Substance: EZETIMIBE
     Indication: Product used for unknown indication
     Route: 065
  6. METOPROLOL [Concomitant]
     Active Substance: METOPROLOL
     Indication: Product used for unknown indication
     Route: 065

REACTIONS (20)
  - Erythema [Recovering/Resolving]
  - Fatigue [Recovering/Resolving]
  - Hypocalcaemia [Recovering/Resolving]
  - Malaise [Recovering/Resolving]
  - Mucosal erosion [Recovering/Resolving]
  - Nail pitting [Recovering/Resolving]
  - Neutrophilia [Recovering/Resolving]
  - Nikolsky^s sign positive [Recovering/Resolving]
  - Oral pain [Recovering/Resolving]
  - Pain of skin [Recovering/Resolving]
  - Psoriasis [Recovering/Resolving]
  - Pustular psoriasis [Recovering/Resolving]
  - Pustule [Recovering/Resolving]
  - Rash pustular [Recovering/Resolving]
  - Renal impairment [Recovering/Resolving]
  - Skin disorder [Recovering/Resolving]
  - Skin exfoliation [Recovering/Resolving]
  - Skin hyperplasia [Recovering/Resolving]
  - Swelling face [Recovering/Resolving]
  - Toxic epidermal necrolysis [Recovering/Resolving]
